FAERS Safety Report 10425621 (Version 7)
Quarter: 2015Q1

REPORT INFORMATION
  Report Type: Report from Study
  Country: CA (occurrence: CA)
  Receive Date: 20140902
  Receipt Date: 20150114
  Transmission Date: 20150720
  Serious: Yes (Other)
  Sender: FDA-Public Use
  Company Number: CA-ROCHE-1364347

PATIENT
  Age: 57 Year
  Sex: Male

DRUGS (16)
  1. ACTEMRA [Suspect]
     Active Substance: TOCILIZUMAB
     Indication: STILL^S DISEASE ADULT ONSET
     Route: 058
     Dates: start: 2014
  2. ANAKINRA [Concomitant]
     Active Substance: ANAKINRA
  3. VENTOLIN [Concomitant]
     Active Substance: ALBUTEROL SULFATE
  4. FLOMAX [Concomitant]
     Active Substance: TAMSULOSIN HYDROCHLORIDE
  5. ACTONEL [Concomitant]
     Active Substance: RISEDRONATE SODIUM
  6. VITAMIN B12 [Concomitant]
     Active Substance: CYANOCOBALAMIN
  7. PRISTIQ EXTENDED RELEASE [Concomitant]
     Active Substance: DESVENLAFAXINE SUCCINATE
  8. FINASTERIDE. [Concomitant]
     Active Substance: FINASTERIDE
  9. ACTEMRA [Suspect]
     Active Substance: TOCILIZUMAB
     Indication: STILL^S DISEASE ADULT ONSET
     Route: 042
     Dates: start: 20140310
  10. SINGULAIR [Concomitant]
     Active Substance: MONTELUKAST SODIUM
  11. VITAMIN C [Concomitant]
     Active Substance: ASCORBIC ACID
  12. PANTOLOC [Concomitant]
     Active Substance: PANTOPRAZOLE SODIUM
  13. ENDOCET [Concomitant]
     Active Substance: ACETAMINOPHEN\OXYCODONE HYDROCHLORIDE
  14. CYMBALTA [Concomitant]
     Active Substance: DULOXETINE HYDROCHLORIDE
  15. SIMBICORT [Concomitant]
     Active Substance: BUDESONIDE\FORMOTEROL FUMARATE
  16. PLAQUENIL [Concomitant]
     Active Substance: HYDROXYCHLOROQUINE SULFATE

REACTIONS (26)
  - Skin lesion [Not Recovered/Not Resolved]
  - Rhinorrhoea [Not Recovered/Not Resolved]
  - Sluggishness [Not Recovered/Not Resolved]
  - Off label use [Unknown]
  - Diarrhoea [Recovered/Resolved]
  - Neck mass [Not Recovered/Not Resolved]
  - Oropharyngeal pain [Unknown]
  - Constipation [Recovered/Resolved]
  - Still^s disease adult onset [Not Recovered/Not Resolved]
  - Gallbladder disorder [Unknown]
  - Nasal congestion [Not Recovered/Not Resolved]
  - Abdominal discomfort [Not Recovered/Not Resolved]
  - Hypertension [Unknown]
  - Nasopharyngitis [Recovered/Resolved]
  - Nasal congestion [Unknown]
  - Local swelling [Not Recovered/Not Resolved]
  - Fatigue [Not Recovered/Not Resolved]
  - Immune system disorder [Not Recovered/Not Resolved]
  - Myalgia [Not Recovered/Not Resolved]
  - Nausea [Recovered/Resolved]
  - Arthralgia [Not Recovered/Not Resolved]
  - Chest discomfort [Unknown]
  - Pulse pressure increased [Unknown]
  - Aphthous stomatitis [Recovered/Resolved]
  - Rash pustular [Recovered/Resolved]
  - Abdominal pain upper [Unknown]

NARRATIVE: CASE EVENT DATE: 20140311
